FAERS Safety Report 6971632-1 (Version None)
Quarter: 2010Q3

REPORT INFORMATION
  Report Type: 
  Country: None (occurrence: None)
  Receive Date: 20100908
  Receipt Date: 20100902
  Transmission Date: 20110219
  Serious: Yes (Death)
  Sender: FDA-Public Use
  Company Number: GR-ELI_LILLY_AND_COMPANY-GR201009001495

PATIENT

DRUGS (2)
  1. GEMZAR [Suspect]
     Indication: HEAD AND NECK CANCER
     Dosage: 1000 MG/M2, ON DAYS 1 AND 8 EVERY 3 WEEKS
     Route: 065
  2. PACLITAXEL [Concomitant]
     Indication: HEAD AND NECK CANCER
     Dosage: 175 MG/M2, UNKNOWN
     Route: 065

REACTIONS (1)
  - MYOCARDIAL INFARCTION [None]
